FAERS Safety Report 18595258 (Version 1)
Quarter: 2020Q4

REPORT INFORMATION
  Report Type: Spontaneous
  Country: US (occurrence: US)
  Receive Date: 20201209
  Receipt Date: 20201209
  Transmission Date: 20210114
  Serious: No
  Sender: FDA-Public Use
  Company Number: US-JNJFOC-20201206200

PATIENT
  Age: 7 Decade
  Sex: Female
  Weight: 81.72 kg

DRUGS (1)
  1. WOMENS ROGAINE [Suspect]
     Active Substance: MINOXIDIL
     Indication: ALOPECIA
     Dosage: I USED THE DROPPER. TWICE DAILY; LAST ADMINI. DATE:/NOV/2020
     Route: 061
     Dates: start: 202006

REACTIONS (1)
  - Application site pruritus [Recovered/Resolved]

NARRATIVE: CASE EVENT DATE: 2020
